FAERS Safety Report 8166049-0 (Version None)
Quarter: 2012Q1

REPORT INFORMATION
  Report Type: 
  Country: None (occurrence: None)
  Receive Date: 20120227
  Receipt Date: 20110314
  Transmission Date: 20120608
  Serious: No
  Sender: FDA-Public Use
  Company Number: US-MYLANLABS-2011S1004092

PATIENT
  Age: 13 Year
  Sex: Male
  Weight: 65.77 kg

DRUGS (4)
  1. AMNESTEEM [Suspect]
     Indication: ACNE CYSTIC
     Route: 048
     Dates: start: 20101207
  2. AMNESTEEM [Suspect]
     Route: 048
     Dates: end: 20110113
  3. AMNESTEEM [Suspect]
     Route: 048
  4. ZYRTEC [Concomitant]
     Indication: MULTIPLE ALLERGIES

REACTIONS (4)
  - DRUG INEFFECTIVE [None]
  - ACNE [None]
  - MIGRAINE [None]
  - BACK PAIN [None]
